FAERS Safety Report 9113866 (Version 1)
Quarter: 2013Q1

REPORT INFORMATION
  Report Type: Spontaneous
  Country: DE (occurrence: DE)
  Receive Date: 20130208
  Receipt Date: 20130208
  Transmission Date: 20140127
  Serious: Yes (Other)
  Sender: FDA-Public Use
  Company Number: DE-TEVA-383554GER

PATIENT
  Age: 89 Year
  Sex: Male

DRUGS (2)
  1. COTRIM [Suspect]
     Indication: URINARY TRACT INFECTION
     Dosage: SULFAMETHOXAZOLE/TRIMETHOPRIM
     Dates: start: 20130121
  2. TAZOBAC [Concomitant]

REACTIONS (6)
  - Dementia [Not Recovered/Not Resolved]
  - Psychotic disorder [Not Recovered/Not Resolved]
  - Disorientation [Not Recovered/Not Resolved]
  - Depersonalisation [Not Recovered/Not Resolved]
  - Hallucination [Not Recovered/Not Resolved]
  - Skin candida [Not Recovered/Not Resolved]
